FAERS Safety Report 10062918 (Version 1)
Quarter: 2014Q2

REPORT INFORMATION
  Report Type: Spontaneous
  Country: US (occurrence: US)
  Receive Date: 20140407
  Receipt Date: 20140407
  Transmission Date: 20141212
  Serious: Yes (Hospitalization)
  Sender: FDA-Public Use
  Company Number: US-ENDO PHARMACEUTICALS INC.-OPCR20140114

PATIENT
  Age: 61 Year
  Sex: Female

DRUGS (2)
  1. OPANA ER 40MG [Suspect]
     Indication: FIBROMYALGIA
     Route: 048
  2. OPANA ER 40MG [Suspect]
     Dosage: UNK
     Route: 048
     Dates: start: 201201

REACTIONS (5)
  - Cholelithiasis [Recovered/Resolved]
  - Feeling abnormal [Not Recovered/Not Resolved]
  - Abdominal pain [Not Recovered/Not Resolved]
  - Constipation [Not Recovered/Not Resolved]
  - Decreased appetite [Not Recovered/Not Resolved]
